FAERS Safety Report 8288452-0 (Version None)
Quarter: 2012Q2

REPORT INFORMATION
  Report Type: 
  Country: None (occurrence: None)
  Receive Date: 20120416
  Receipt Date: 20120405
  Transmission Date: 20120825
  Serious: No
  Sender: FDA-Public Use
  Company Number: BR-ROCHE-1057209

PATIENT
  Sex: Female
  Weight: 58 kg

DRUGS (1)
  1. ISOTRETINOIN [Suspect]
     Indication: ACNE
     Route: 048
     Dates: start: 20120203, end: 20120305

REACTIONS (3)
  - NAUSEA [None]
  - DRUG ADMINISTRATION ERROR [None]
  - MATERNAL EXPOSURE DURING PREGNANCY [None]
